FAERS Safety Report 6210350-4 (Version None)
Quarter: 2009Q2

REPORT INFORMATION
  Report Type: 
  Country: None (occurrence: None)
  Receive Date: 20090529
  Receipt Date: 20090529
  Transmission Date: 20091009
  Serious: Yes (Other)
  Sender: FDA-Public Use
  Company Number: None

PATIENT
  Age: 35 Year
  Sex: Female
  Weight: 62.1428 kg

DRUGS (1)
  1. BUPROPION HCL [Suspect]
     Indication: SMOKING CESSATION THERAPY
     Dosage: 150 MG 1 P DAY F-/ 3 DAYS- BUCCAL 150 2 X DAY BUCCAL
     Route: 002
     Dates: start: 20090515, end: 20090520

REACTIONS (11)
  - ANXIETY [None]
  - CHEST DISCOMFORT [None]
  - CONSTIPATION [None]
  - DIZZINESS [None]
  - HALLUCINATION [None]
  - HEAT RASH [None]
  - HYPOVENTILATION [None]
  - INSOMNIA [None]
  - MULTIPLE ALLERGIES [None]
  - MUSCLE TIGHTNESS [None]
  - SENSORY DISTURBANCE [None]
